FAERS Safety Report 21412891 (Version 1)
Quarter: 2022Q4

REPORT INFORMATION
  Report Type: Spontaneous
  Country: CN (occurrence: CN)
  Receive Date: 20221005
  Receipt Date: 20221005
  Transmission Date: 20230113
  Serious: Yes (Other)
  Sender: FDA-Public Use
  Company Number: CN-009507513-2210CHN000022

PATIENT
  Age: 53 Year
  Sex: Female

DRUGS (4)
  1. CILASTATIN SODIUM\IMIPENEM [Suspect]
     Active Substance: CILASTATIN SODIUM\IMIPENEM
     Indication: Anti-infective therapy
     Dosage: 0.5 GRAM, EVERY 12 HOURS (ALSO REPORTED AS ONCE IN A DAY)
     Route: 041
     Dates: start: 20220715
  2. CILASTATIN SODIUM\IMIPENEM [Suspect]
     Active Substance: CILASTATIN SODIUM\IMIPENEM
     Dosage: 0.5 GRAM,  EVERY 12 HOURS (ALSO REPORTED AS ONCE IN A DAY)
     Route: 041
     Dates: start: 202209
  3. CILASTATIN SODIUM\IMIPENEM [Suspect]
     Active Substance: CILASTATIN SODIUM\IMIPENEM
     Dosage: 0.5 GRAM,  EVERY 12 HOURS (ALSO REPORTED AS ONCE IN A DAY)
     Route: 041
     Dates: start: 20220916
  4. SODIUM CHLORIDE [Concomitant]
     Active Substance: SODIUM CHLORIDE
     Indication: Anti-infective therapy
     Dosage: 50 MILLILITER, EVERY 12 HOURS (ALSO REPORTED AS ONCE IN A DAY)
     Route: 041
     Dates: start: 20220715, end: 20220716

REACTIONS (1)
  - Epilepsy [Recovering/Resolving]

NARRATIVE: CASE EVENT DATE: 20220716
